FAERS Safety Report 7042775-1 (Version None)
Quarter: 2010Q4

REPORT INFORMATION
  Report Type: 
  Country: None (occurrence: None)
  Receive Date: 20101013
  Receipt Date: 20100517
  Transmission Date: 20110411
  Serious: No
  Sender: FDA-Public Use
  Company Number: US-ASTRAZENECA-2010SE22358

PATIENT
  Age: 758 Month
  Sex: Female
  Weight: 68.9 kg

DRUGS (2)
  1. SYMBICORT [Suspect]
     Indication: BRONCHITIS CHRONIC
     Route: 055
     Dates: start: 20100201, end: 20100301
  2. SYMBICORT [Suspect]
     Route: 055
     Dates: start: 20100301

REACTIONS (2)
  - INCORRECT DOSE ADMINISTERED [None]
  - NERVOUSNESS [None]
